FAERS Safety Report 5947103-8 (Version None)
Quarter: 2008Q4

REPORT INFORMATION
  Report Type: 
  Country: None (occurrence: None)
  Receive Date: 20081110
  Receipt Date: 20081106
  Transmission Date: 20090506
  Serious: Yes (Death)
  Sender: FDA-Public Use
  Company Number: JP-SANOFI-SYNTHELABO-F01200801691

PATIENT
  Sex: Female
  Weight: 71 kg

DRUGS (9)
  1. ZOFRAN [Concomitant]
     Dosage: UNK
     Dates: start: 20070629, end: 20070929
  2. LIPITOR [Concomitant]
     Dosage: UNK
     Dates: start: 20070331, end: 20070929
  3. RABEPRAZOLE SODIUM [Concomitant]
     Dosage: UNK
     Dates: start: 20060823, end: 20070929
  4. MAGNESIUM OXIDE [Concomitant]
     Dosage: UNK
     Dates: start: 20060718, end: 20070929
  5. IRINOTECAN HYDROCHLORIDE [Concomitant]
     Dosage: UNK
     Route: 041
     Dates: start: 20080221, end: 20080221
  6. AVASTIN [Suspect]
     Route: 041
     Dates: start: 20080221, end: 20080221
  7. FLUOROURACIL [Suspect]
     Dosage: UNK
     Route: 042
     Dates: start: 20080223, end: 20080223
  8. LEUCOVORIN CALCIUM [Suspect]
     Dosage: UNK
     Route: 041
     Dates: start: 20080225, end: 20080225
  9. ELPLAT [Suspect]
     Indication: RECTAL CANCER RECURRENT
     Dosage: UNK
     Route: 041
     Dates: start: 20071108, end: 20071108

REACTIONS (1)
  - DISEASE PROGRESSION [None]
